FAERS Safety Report 8200730-X (Version None)
Quarter: 2012Q1

REPORT INFORMATION
  Report Type: 
  Country: None (occurrence: None)
  Receive Date: 20120308
  Receipt Date: 20120301
  Transmission Date: 20120608
  Serious: Yes (Hospitalization, Congenital Anomaly, Other)
  Sender: FDA-Public Use
  Company Number: GER/GER/12/0023280

PATIENT
  Sex: Female
  Weight: 3.29 kg

DRUGS (3)
  1. METFORMIN HCL [Suspect]
     Indication: PRODUCT USED FOR UNKNOWN INDICATION
     Dosage: 2000 MG, 1 IN 1 D, TRANSPLACENTAL
     Route: 064
     Dates: start: 20100803, end: 20110111
  2. 1-THYROXIN (LEVOTHYROXINE SODIUIM) [Concomitant]
  3. DEKRISTOL (COLECALCIFEROL) [Concomitant]

REACTIONS (4)
  - CONGENITAL ANOMALY [None]
  - OVARIAN CYST [None]
  - MATERNAL DRUGS AFFECTING FOETUS [None]
  - OVARIAN CYST TORSION [None]
